FAERS Safety Report 10249190 (Version 1)
Quarter: 2014Q2

REPORT INFORMATION
  Report Type: Spontaneous
  Country: US (occurrence: None)
  Receive Date: 20140618
  Receipt Date: 20140618
  Transmission Date: 20141212
  Serious: Yes (Hospitalization)
  Sender: FDA-Public Use
  Company Number: None

PATIENT
  Age: 34 Year
  Sex: Female
  Weight: 77.4 kg

DRUGS (3)
  1. DAPTOMYCIN [Suspect]
     Indication: POST PROCEDURAL INFECTION
     Route: 042
     Dates: start: 20140524, end: 20140609
  2. LEVAQUIN [Concomitant]
  3. MEROPENEM [Concomitant]

REACTIONS (3)
  - Eosinophilic pneumonia [None]
  - Hypoxia [None]
  - Fibrin D dimer increased [None]
